FAERS Safety Report 8956745 (Version 1)
Quarter: 2012Q4

REPORT INFORMATION
  Report Type: 
  Country: US (occurrence: US)
  Receive Date: 20121211
  Receipt Date: 20121211
  Transmission Date: 20130627
  Serious: Yes (Other)
  Sender: FDA-Public Use
  Company Number: US-PFIZER INC-2005074293

PATIENT
  Age: 46 Year
  Sex: Female
  Weight: 70.31 kg

DRUGS (7)
  1. NEURONTIN [Suspect]
     Indication: HEADACHE
     Dosage: 600 mg, 3x/day
     Route: 048
     Dates: start: 2002, end: 2003
  2. NEURONTIN [Interacting]
     Dosage: 800 mg, 4x/day
     Dates: start: 2003
  3. MOTRIN [Suspect]
     Indication: PAIN
     Dosage: 800 mg, UNK
     Route: 048
     Dates: start: 2002
  4. HYDROCODONE [Interacting]
     Indication: ILL-DEFINED DISORDER
     Dosage: UNK
     Route: 065
  5. MOBIC [Interacting]
     Indication: PAIN
     Dosage: UNK
     Route: 048
     Dates: start: 20050509, end: 20050510
  6. OXYCODONE [Interacting]
     Dosage: UNK
  7. ULTRAM [Concomitant]
     Route: 048

REACTIONS (14)
  - Brain injury [Unknown]
  - Nerve compression [Not Recovered/Not Resolved]
  - Pain [Not Recovered/Not Resolved]
  - Neuropathy peripheral [Not Recovered/Not Resolved]
  - Insomnia [Unknown]
  - Intervertebral disc protrusion [Not Recovered/Not Resolved]
  - Nerve injury [Not Recovered/Not Resolved]
  - Malaise [Unknown]
  - Drug ineffective [Unknown]
  - Back pain [Unknown]
  - Pain in extremity [Not Recovered/Not Resolved]
  - Musculoskeletal pain [Not Recovered/Not Resolved]
  - Headache [Unknown]
  - Drug interaction [Unknown]
